FAERS Safety Report 10093528 (Version 1)
Quarter: 2014Q2

REPORT INFORMATION
  Report Type: Spontaneous
  Country: US (occurrence: US)
  Receive Date: 20140421
  Receipt Date: 20140421
  Transmission Date: 20141212
  Serious: No
  Sender: FDA-Public Use
  Company Number: US-SA-2014SA000957

PATIENT
  Age: 81 Year
  Sex: Female

DRUGS (3)
  1. ALLEGRA [Suspect]
     Indication: HYPERSENSITIVITY
     Route: 048
  2. BENADRYL [Concomitant]
  3. ANTIHISTAMINES [Concomitant]

REACTIONS (2)
  - Rash [Recovered/Resolved]
  - Pruritus [Unknown]
